FAERS Safety Report 15689093 (Version 2)
Quarter: 2018Q4

REPORT INFORMATION
  Report Type: Report from Study
  Country: IT (occurrence: IT)
  Receive Date: 20181205
  Receipt Date: 20181205
  Transmission Date: 20190205
  Serious: Yes (Other)
  Sender: FDA-Public Use
  Company Number: IT-BAYER-2018-217716

PATIENT
  Age: 90 Year
  Sex: Male

DRUGS (3)
  1. CARDIOASPIRIN [Suspect]
     Active Substance: ASPIRIN
     Dosage: UNK
  2. OLANZAPINE. [Suspect]
     Active Substance: OLANZAPINE
     Dosage: UNK
  3. PLAVIX [Suspect]
     Active Substance: CLOPIDOGREL BISULFATE
     Dosage: UNK

REACTIONS (2)
  - Rectal haemorrhage [Unknown]
  - Diarrhoea [Unknown]

NARRATIVE: CASE EVENT DATE: 20181026
